FAERS Safety Report 17502200 (Version 1)
Quarter: 2020Q1

REPORT INFORMATION
  Report Type: Spontaneous
  Country: US (occurrence: US)
  Receive Date: 20200305
  Receipt Date: 20200305
  Transmission Date: 20200409
  Serious: Yes (Death, Hospitalization)
  Sender: FDA-Public Use
  Company Number: US-TEVA-2020-US-1193409

PATIENT
  Age: 49 Year
  Sex: Female

DRUGS (13)
  1. DEXTROSE. [Suspect]
     Active Substance: DEXTROSE
     Indication: TOXICITY TO VARIOUS AGENTS
     Dosage: 50% DEXTROSE IN WATER
     Route: 065
  2. FENTANYL. [Concomitant]
     Active Substance: FENTANYL
     Route: 065
  3. ACETAMINOPHEN. [Suspect]
     Active Substance: ACETAMINOPHEN
     Indication: PAIN
     Dosage: 2-3 TABLETS EVERY 4 - 6 H
     Route: 048
  4. SODIUM-BICARBONATE [Suspect]
     Active Substance: SODIUM BICARBONATE
     Indication: TOXICITY TO VARIOUS AGENTS
     Dosage: THREE AMPOULES
     Route: 065
  5. N-ACETYL CYSTEINE [Suspect]
     Active Substance: ACETYLCYSTEINE
     Indication: TOXICITY TO VARIOUS AGENTS
     Dosage: THREE AMPOULES
     Route: 065
  6. PROPOFOL. [Concomitant]
     Active Substance: PROPOFOL
     Route: 065
  7. OXYCODONE [Concomitant]
     Active Substance: OXYCODONE
     Route: 065
  8. LORAZEPAM. [Concomitant]
     Active Substance: LORAZEPAM
     Route: 065
  9. NOREPINEPHRINE. [Suspect]
     Active Substance: NOREPINEPHRINE
     Indication: TOXICITY TO VARIOUS AGENTS
     Route: 065
  10. TRAMADOL. [Concomitant]
     Active Substance: TRAMADOL
     Route: 065
  11. VASOPRESSIN. [Suspect]
     Active Substance: VASOPRESSIN
     Indication: TOXICITY TO VARIOUS AGENTS
     Route: 065
  12. SIMVASTATIN. [Concomitant]
     Active Substance: SIMVASTATIN
     Route: 065
  13. FOMEPIZOLE. [Concomitant]
     Active Substance: FOMEPIZOLE
     Indication: TOXICITY TO VARIOUS AGENTS
     Route: 065

REACTIONS (10)
  - Dysarthria [Fatal]
  - Ascites [Fatal]
  - Pancreatitis [Fatal]
  - Pneumonia aspiration [Fatal]
  - Brain oedema [Fatal]
  - Toxicity to various agents [Fatal]
  - Hypoglycaemia [Fatal]
  - Splenic infarction [Fatal]
  - Acute respiratory distress syndrome [Fatal]
  - Drug ineffective [Unknown]
